FAERS Safety Report 4331302-5 (Version None)
Quarter: 2004Q1

REPORT INFORMATION
  Report Type: 
  Country: None (occurrence: None)
  Receive Date: 20040331
  Receipt Date: 20040316
  Transmission Date: 20041129
  Serious: Yes (Hospitalization)
  Sender: FDA-Public Use
  Company Number: EWC040338515

PATIENT
  Age: 45 Year
  Sex: Male

DRUGS (2)
  1. HUMALOG [Suspect]
     Indication: DIABETES MELLITUS
     Dates: start: 20030101, end: 20030101
  2. HUMALOG [Suspect]
     Indication: DIABETES MELLITUS

REACTIONS (4)
  - BLOOD GLUCOSE INCREASED [None]
  - DIABETIC FOOT INFECTION [None]
  - HYPOGLYCAEMIA [None]
  - MEDICATION ERROR [None]
